FAERS Safety Report 5283485-0 (Version None)
Quarter: 2007Q1

REPORT INFORMATION
  Report Type: 
  Country: None (occurrence: None)
  Receive Date: 20061226
  Receipt Date: 20060928
  Transmission Date: 20070707
  Serious: No
  Sender: FDA-Public Use
  Company Number: 2006PV022153

PATIENT
  Age: 50 Year
  Sex: Female
  Weight: 78.4723 kg

DRUGS (4)
  1. SYMLIN [Suspect]
     Indication: DIABETES MELLITUS INSULIN-DEPENDENT
     Dosage: SEE IMAGE
     Route: 058
     Dates: start: 20060906, end: 20060901
  2. SYMLIN [Suspect]
     Indication: DIABETES MELLITUS INSULIN-DEPENDENT
     Dosage: SEE IMAGE
     Route: 058
     Dates: start: 20060901, end: 20060920
  3. EPIDRA INSULIN [Concomitant]
  4. ZYRTEC [Concomitant]

REACTIONS (6)
  - HYPERSENSITIVITY [None]
  - HYPERSOMNIA [None]
  - INJECTION SITE PAIN [None]
  - INJECTION SITE RASH [None]
  - MENTAL IMPAIRMENT [None]
  - NAUSEA [None]
